FAERS Safety Report 11764922 (Version 1)
Quarter: 2015Q4

REPORT INFORMATION
  Report Type: Spontaneous
  Country: US (occurrence: US)
  Receive Date: 20151120
  Receipt Date: 20151120
  Transmission Date: 20160304
  Serious: No
  Sender: FDA-Public Use
  Company Number: US-ELI_LILLY_AND_COMPANY-US201309000514

PATIENT
  Sex: Female

DRUGS (1)
  1. FORTEO [Suspect]
     Active Substance: TERIPARATIDE
     Indication: OSTEOPOROSIS
     Dosage: 20 UG, QD

REACTIONS (7)
  - Chronic obstructive pulmonary disease [Unknown]
  - Dysphagia [Unknown]
  - Sjogren^s syndrome [Unknown]
  - Injection site rash [Unknown]
  - Needle track marks [Unknown]
  - Lung disorder [Unknown]
  - Injection site bruising [Unknown]
